FAERS Safety Report 6401203-7 (Version None)
Quarter: 2009Q4

REPORT INFORMATION
  Report Type: 
  Country: None (occurrence: None)
  Receive Date: 20091015
  Receipt Date: 20091006
  Transmission Date: 20100525
  Serious: Yes (Other)
  Sender: FDA-Public Use
  Company Number: US-ROCHE-658340

PATIENT
  Sex: Male

DRUGS (18)
  1. MYCOPHENOLATE MOFETIL [Suspect]
     Route: 048
     Dates: start: 20080829
  2. CP-690550 [Suspect]
     Route: 048
     Dates: start: 20080831, end: 20090822
  3. CP-690550 [Suspect]
     Route: 048
     Dates: start: 20090823
  4. PREDNISONE [Suspect]
     Indication: IMMUNOSUPPRESSION
     Route: 048
     Dates: start: 20080901
  5. PREDNISONE [Suspect]
     Route: 048
  6. PREDNISONE [Suspect]
     Dosage: TAPERED DOWN TO 5 MG DAILY
     Route: 048
  7. FAMOTIDINE [Concomitant]
     Dates: start: 20080829
  8. COTRIM [Concomitant]
     Dates: start: 20080829
  9. AMLODIPINE [Concomitant]
     Dates: start: 20080912
  10. ATORVASTATIN [Concomitant]
     Dates: start: 20080912
  11. LOSARTAN POSTASSIUM [Concomitant]
     Dates: start: 20080912
  12. DULOXETINE [Concomitant]
     Dates: start: 20080912
  13. CARVEDILOL [Concomitant]
     Dates: start: 20090302
  14. HYDROCHLOROTHIAZIDE [Concomitant]
     Dates: start: 20090302
  15. HYDROCODONE BITARTRATE + ACETAMINOPHEN [Concomitant]
     Dosage: DRUG NAME REPORTED AS: HYDROCODONE W/ACETAMINOPHEN (HYDROCODONE BITARTRATE, PARACETAMOL)
     Dates: start: 20090302
  16. AMRIX [Concomitant]
     Dates: start: 20090302
  17. INSULIN GLARGINE [Concomitant]
     Dates: start: 20090302
  18. INSULIN ASPART [Concomitant]
     Dates: start: 20090302

REACTIONS (1)
  - KIDNEY TRANSPLANT REJECTION [None]
